FAERS Safety Report 19942013 (Version 1)
Quarter: 2021Q4

REPORT INFORMATION
  Report Type: Spontaneous
  Country: US (occurrence: US)
  Receive Date: 20211012
  Receipt Date: 20211012
  Transmission Date: 20220304
  Serious: No
  Sender: FDA-Public Use
  Company Number: US-TEVA-2021-US-1962840

PATIENT
  Sex: Female

DRUGS (1)
  1. AUSTEDO [Suspect]
     Active Substance: DEUTETRABENAZINE
     Indication: Tardive dyskinesia
     Dosage: ONE IN A DAY AND ONE IN THE NIGHT
     Route: 065
     Dates: start: 20210701

REACTIONS (2)
  - Therapy non-responder [Unknown]
  - Dyskinesia [Unknown]
